FAERS Safety Report 12850411 (Version 1)
Quarter: 2016Q4

REPORT INFORMATION
  Report Type: Spontaneous
  Country: FR (occurrence: FR)
  Receive Date: 20161014
  Receipt Date: 20161014
  Transmission Date: 20170207
  Serious: Yes (Other)
  Sender: FDA-Public Use
  Company Number: FR-SA-2016SA184544

PATIENT
  Age: 2 Month
  Sex: Male
  Weight: 1.92 kg

DRUGS (2)
  1. RIFADINE [Suspect]
     Active Substance: RIFAMPIN
     Indication: SEPSIS
     Route: 042
     Dates: start: 20160916
  2. RIFADINE [Suspect]
     Active Substance: RIFAMPIN
     Indication: MENINGITIS BACTERIAL
     Route: 042
     Dates: start: 20160916

REACTIONS (3)
  - Injection site extravasation [Recovering/Resolving]
  - Skin necrosis [Recovering/Resolving]
  - Infusion site injury [Recovering/Resolving]

NARRATIVE: CASE EVENT DATE: 20160917
